FAERS Safety Report 11591084 (Version 1)
Quarter: 2015Q4

REPORT INFORMATION
  Report Type: Spontaneous
  Country: IT (occurrence: IT)
  Receive Date: 20151003
  Receipt Date: 20151003
  Transmission Date: 20160304
  Serious: Yes (Other)
  Sender: FDA-Public Use
  Company Number: IT-AUROBINDO-AUR-APL-2015-08843

PATIENT
  Age: 1 Year
  Sex: Male

DRUGS (2)
  1. GABAPENTINA [Suspect]
     Active Substance: GABAPENTIN
     Indication: PRODUCT USED FOR UNKNOWN INDICATION
     Route: 048
     Dates: start: 20150803, end: 20150803
  2. OMEPRAZOLE ACTAVIS PTC 20 MG GASTRO-RESISTANT CAPSULES,HARD [Suspect]
     Active Substance: OMEPRAZOLE
     Indication: PRODUCT USED FOR UNKNOWN INDICATION
     Route: 048
     Dates: start: 20150803, end: 20150803

REACTIONS (2)
  - Accidental exposure to product by child [Unknown]
  - Overdose [Unknown]

NARRATIVE: CASE EVENT DATE: 20150803
